FAERS Safety Report 9277359 (Version 1)
Quarter: 2013Q2

REPORT INFORMATION
  Report Type: Spontaneous
  Country: US (occurrence: None)
  Receive Date: 20130503
  Receipt Date: 20130503
  Transmission Date: 20140414
  Serious: Yes (Other)
  Sender: FDA-Public Use
  Company Number: None

PATIENT
  Age: 63 Year
  Sex: Male
  Weight: 83.92 kg

DRUGS (4)
  1. AZOPT [Suspect]
     Indication: INTRAOCULAR PRESSURE INCREASED
     Dosage: 1 DROP IN MORNING ?1 DROP AT NIGHT        EYE
     Route: 047
     Dates: start: 201105
  2. ALPHARGAN 5 ML [Concomitant]
  3. LATANOPROST 2.5 ML [Concomitant]
  4. DORZOLAMIDE HCL- TIMOLOL MALEATE OPHTHALMIC SOLUTION [Concomitant]

REACTIONS (5)
  - Headache [None]
  - Eye pruritus [None]
  - Eye swelling [None]
  - Eye irritation [None]
  - Intraocular pressure increased [None]
